FAERS Safety Report 4951771-7 (Version None)
Quarter: 2006Q1

REPORT INFORMATION
  Report Type: 
  Country: None (occurrence: None)
  Receive Date: 20060322
  Receipt Date: 20060322
  Transmission Date: 20060701
  Serious: Yes (Hospitalization, Other)
  Sender: FDA-Public Use
  Company Number: None

PATIENT
  Age: 40 Year
  Sex: Male
  Weight: 63 kg

DRUGS (17)
  1. ALBENDAZOLE 400 MG SMITHKLINE BEECHAM [Suspect]
     Indication: COLITIS
     Dosage: 400 MG TWO TIMES DAILY PO
     Route: 048
     Dates: start: 20060112, end: 20060314
  2. ALBENDAZOLE 400 MG SMITHKLINE BEECHAM [Suspect]
     Indication: MICROSPORIDIA INFECTION
     Dosage: 400 MG TWO TIMES DAILY PO
     Route: 048
     Dates: start: 20060112, end: 20060314
  3. RITONAVIR [Concomitant]
  4. FOSAMPRENAVIR CALCIUM [Concomitant]
  5. LAMIVUDINE [Concomitant]
  6. VALGANCICLOVIR [Concomitant]
  7. MEGESTROL ACETATE [Concomitant]
  8. GUAFENSIN [Concomitant]
  9. CYTA-Z [Concomitant]
  10. FERROUS SULFATE TAB [Concomitant]
  11. FEXOFENODINE [Concomitant]
  12. FLUCONAZOLE [Concomitant]
  13. DIDANOSINE [Concomitant]
  14. ESOMEPRAZOLE [Concomitant]
  15. MIRTAZAPINE [Concomitant]
  16. SAQUINAVIR MESYLATE [Concomitant]
  17. SULFAMETHOXAZOLE + TRIMETHOPRIM [Concomitant]

REACTIONS (4)
  - AGRANULOCYTOSIS [None]
  - BONE MARROW FAILURE [None]
  - PNEUMONIA [None]
  - THROMBOCYTOPENIA [None]
